FAERS Safety Report 5915022-9 (Version None)
Quarter: 2008Q4

REPORT INFORMATION
  Report Type: 
  Country: None (occurrence: None)
  Receive Date: 20081010
  Receipt Date: 20081008
  Transmission Date: 20090506
  Serious: Yes (Hospitalization)
  Sender: FDA-Public Use
  Company Number: DE-BRISTOL-MYERS SQUIBB COMPANY-14362685

PATIENT
  Age: 51 Year
  Sex: Female

DRUGS (4)
  1. PACLITAXEL [Suspect]
     Indication: OVARIAN EPITHELIAL CANCER
     Dosage: FIRST DOSE TAKEN ON 04-AUG-2008 (ABSOLUTE DOSE 300 MG)
     Route: 042
     Dates: start: 20080915, end: 20080915
  2. CARBOPLATIN [Suspect]
     Indication: OVARIAN EPITHELIAL CANCER
     Dosage: FIRST DOSE TAKEN ON 04-AUG-2008 (5 AUC)
     Route: 042
     Dates: start: 20080915, end: 20080915
  3. BLINDED: ENZASTAURIN [Suspect]
     Indication: OVARIAN EPITHELIAL CANCER
     Route: 048
     Dates: start: 20080803, end: 20080920
  4. BLINDED: PLACEBO [Suspect]
     Indication: OVARIAN EPITHELIAL CANCER
     Route: 048
     Dates: start: 20080803, end: 20080920

REACTIONS (2)
  - LEUKOPENIA [None]
  - URETERIC PERFORATION [None]
